FAERS Safety Report 8886055 (Version 4)
Quarter: 2013Q4

REPORT INFORMATION
  Report Type: Spontaneous
  Country: US (occurrence: US)
  Receive Date: 20121105
  Receipt Date: 20131204
  Transmission Date: 20140711
  Serious: Yes (Hospitalization, Disabling, Other)
  Sender: FDA-Public Use
  Company Number: US-009507513-1210USA014629

PATIENT
  Sex: Female
  Weight: 55.33 kg

DRUGS (9)
  1. FOSAMAX [Suspect]
     Indication: OSTEOPENIA
     Dosage: 10 MG, UNK
     Route: 048
     Dates: start: 1998, end: 200103
  2. FOSAMAX [Suspect]
     Dosage: 70 MG, QW
     Route: 048
     Dates: start: 200103, end: 200802
  3. FOSAMAX [Suspect]
     Dosage: UNK
     Route: 048
     Dates: end: 20110519
  4. FOSAMAX [Suspect]
     Indication: OSTEOPENIA
     Dosage: UNK
     Route: 048
     Dates: start: 200803
  5. ALENDRONATE SODIUM [Suspect]
     Indication: OSTEOPENIA
     Dosage: 70 MG, UNK
     Route: 048
     Dates: start: 200802, end: 201105
  6. HORMONES (UNSPECIFIED) [Concomitant]
     Dosage: UNK
     Dates: start: 1998, end: 201105
  7. FEXOFENADINE HYDROCHLORIDE [Concomitant]
     Indication: SEASONAL ALLERGY
  8. ALLEGRA [Concomitant]
     Indication: SEASONAL ALLERGY
     Dosage: 180 MG, PRN
     Route: 048
  9. MORPHINE [Concomitant]
     Indication: PAIN

REACTIONS (58)
  - Jaw disorder [Unknown]
  - Skin disorder [Unknown]
  - Biopsy bone [Unknown]
  - Humerus fracture [Unknown]
  - Tooth extraction [Unknown]
  - Sequestrectomy [Recovering/Resolving]
  - Surgery [Unknown]
  - Cerebrovascular accident [Unknown]
  - Osteonecrosis of jaw [Recovered/Resolved]
  - Osteomyelitis [Recovering/Resolving]
  - Dental caries [Unknown]
  - Tooth disorder [Unknown]
  - Dental caries [Unknown]
  - Tooth disorder [Unknown]
  - Dental caries [Unknown]
  - Tooth disorder [Unknown]
  - Dental caries [Unknown]
  - Bleeding varicose vein [Unknown]
  - Complex regional pain syndrome [Not Recovered/Not Resolved]
  - Osteoarthritis [Unknown]
  - Oral pain [Unknown]
  - Fistula discharge [Unknown]
  - Fistula [Unknown]
  - Joint range of motion decreased [Unknown]
  - Osteoarthritis [Unknown]
  - Ear pain [Unknown]
  - Temporomandibular joint syndrome [Unknown]
  - Bronchitis [Unknown]
  - Adverse event [Unknown]
  - Stasis dermatitis [Unknown]
  - Phlebitis [Unknown]
  - Blood potassium decreased [Unknown]
  - Appendicectomy [Unknown]
  - Hysterectomy [Unknown]
  - Varicose vein [Unknown]
  - Joint injury [Unknown]
  - Forearm fracture [Unknown]
  - Tooth disorder [Unknown]
  - Abscess drainage [Recovering/Resolving]
  - Scoliosis [Unknown]
  - Streptococcal infection [Unknown]
  - Bacterial infection [Unknown]
  - Intervertebral disc degeneration [Unknown]
  - Spinal disorder [Unknown]
  - Medical device implantation [Unknown]
  - Gingival recession [Unknown]
  - Gingival pain [Unknown]
  - Oral pain [Unknown]
  - Medical device removal [Unknown]
  - Device ineffective [Unknown]
  - Malaise [Unknown]
  - Drug ineffective [Unknown]
  - Joint swelling [Unknown]
  - Drug hypersensitivity [Unknown]
  - Pain in extremity [Unknown]
  - Treatment failure [Unknown]
  - Tongue ulceration [Unknown]
  - Pain in jaw [Unknown]
